FAERS Safety Report 4469363-5 (Version None)
Quarter: 2004Q4

REPORT INFORMATION
  Report Type: 
  Country: None (occurrence: None)
  Receive Date: 20041008
  Receipt Date: 20040227
  Transmission Date: 20050328
  Serious: No
  Sender: FDA-Public Use
  Company Number: US-BRISTOL-MYERS SQUIBB COMPANY-12520292

PATIENT
  Age: 79 Year
  Sex: Female
  Weight: 71 kg

DRUGS (8)
  1. AVAPRO [Suspect]
     Indication: HYPERTENSION
     Route: 048
  2. SECTRAL [Concomitant]
  3. TRILISATE [Concomitant]
  4. ASPIRIN [Concomitant]
  5. XANAX [Concomitant]
  6. PAMELOR [Concomitant]
  7. MULTIVITAMIN [Concomitant]
  8. FISH OIL [Concomitant]

REACTIONS (1)
  - PANIC ATTACK [None]
